FAERS Safety Report 10626309 (Version 2)
Quarter: 2014Q4

REPORT INFORMATION
  Report Type: Spontaneous
  Country: RU (occurrence: RU)
  Receive Date: 20141204
  Receipt Date: 20141204
  Transmission Date: 20150529
  Serious: Yes (Other)
  Sender: FDA-Public Use
  Company Number: RU-CELGENE-251-21880-13102617

PATIENT
  Age: 58 Year
  Sex: Female
  Weight: 104 kg

DRUGS (4)
  1. REVLIMID [Suspect]
     Active Substance: LENALIDOMIDE
     Indication: PLASMA CELL MYELOMA
     Dosage: 25 MILLIGRAM
     Route: 048
     Dates: start: 20130708, end: 20131010
  2. DEXAMETHASONE. [Suspect]
     Active Substance: DEXAMETHASONE
     Indication: PLASMA CELL MYELOMA
     Route: 048
     Dates: start: 20130708, end: 20131007
  3. BLINDED MLN9708 [Suspect]
     Active Substance: IXAZOMIB
     Indication: PLASMA CELL MYELOMA
     Route: 048
     Dates: start: 20130708, end: 20131007
  4. REVLIMID [Suspect]
     Active Substance: LENALIDOMIDE

REACTIONS (2)
  - Metrorrhagia [Recovered/Resolved]
  - Endometrial hyperplasia [Recovered/Resolved]

NARRATIVE: CASE EVENT DATE: 20130926
